FAERS Safety Report 21795280 (Version 1)
Quarter: 2022Q4

REPORT INFORMATION
  Report Type: Spontaneous
  Country: US (occurrence: None)
  Receive Date: 20221228
  Receipt Date: 20221228
  Transmission Date: 20230113
  Serious: Yes (Other)
  Sender: FDA-Public Use
  Company Number: None

PATIENT
  Sex: Male

DRUGS (7)
  1. NORDITROPIN [Suspect]
     Active Substance: SOMATROPIN
     Indication: Hypopituitarism
     Dosage: 30 MG/3ML SUBCUTANEOUS??INJECT 0.4 MG UNDER THE SKIN (SUBCUTANEOUS INJECTION) DAILY?
     Route: 058
     Dates: start: 20221206
  2. DIGOXIN [Concomitant]
     Active Substance: DIGOXIN
  3. ENALAPRIL TAB [Concomitant]
  4. LEVOTHYROXINE [Concomitant]
     Active Substance: LEVOTHYROXINE
  5. METOPROL SUC [Concomitant]
  6. TESTOSTERONE [Concomitant]
     Active Substance: TESTOSTERONE
  7. WARFARIN [Concomitant]
     Active Substance: WARFARIN

REACTIONS (1)
  - Neoplasm malignant [None]
